FAERS Safety Report 8046065 (Version 6)
Quarter: 2013Q1

REPORT INFORMATION
  Report Type: Spontaneous
  Country: US (occurrence: US)
  Receive Date: 20110720
  Receipt Date: 20130123
  Transmission Date: 20140127
  Serious: Yes (Congenital Anomaly, Other)
  Sender: FDA-Public Use
  Company Number: US-PFIZER INC-2011159786

PATIENT
  Sex: Female
  Weight: 3.7 kg

DRUGS (9)
  1. ZOLOFT [Suspect]
     Indication: DEPRESSION
     Dosage: UNK
     Route: 064
     Dates: start: 1995
  2. ZOLOFT [Suspect]
     Dosage: 50 MG, UNK
     Route: 064
     Dates: start: 19961001
  3. EFFEXOR [Suspect]
     Dosage: UNK
     Route: 064
  4. IBUPROFEN [Concomitant]
     Dosage: UNK
     Route: 064
  5. ERYTHROMYCIN [Concomitant]
     Dosage: UNK
     Route: 064
  6. FLAGYL [Concomitant]
     Indication: VAGINITIS BACTERIAL
     Dosage: UNK
     Route: 064
  7. PRENATAL VITAMINS [Concomitant]
     Dosage: UNK
     Route: 064
  8. TUMS [Concomitant]
     Dosage: UNK
     Route: 064
  9. ROBITUSSIN [Concomitant]
     Dosage: UNK
     Route: 064

REACTIONS (3)
  - Maternal exposure timing unspecified [Unknown]
  - Meningocele [Recovered/Resolved]
  - Congenital anomaly [Unknown]
